FAERS Safety Report 7389524-5 (Version None)
Quarter: 2011Q2

REPORT INFORMATION
  Report Type: 
  Country: None (occurrence: None)
  Receive Date: 20110401
  Receipt Date: 20110322
  Transmission Date: 20111010
  Serious: Yes (Other)
  Sender: FDA-Public Use
  Company Number: PHEH2009US15463

PATIENT
  Sex: Male

DRUGS (21)
  1. GEMFIBROZIL [Concomitant]
     Dosage: 600 MG, BID
     Route: 048
     Dates: start: 20091029
  2. PACERONE [Concomitant]
     Dosage: 200 MG, DAILY
     Route: 048
     Dates: start: 20091029
  3. FIBERCON [Concomitant]
     Dosage: UNK
     Dates: start: 20110303
  4. LISINOPRIL [Concomitant]
  5. TIZANIDINE [Concomitant]
     Dosage: UNK, UNK
     Route: 065
     Dates: start: 20091215
  6. ACETAMINOPHEN AND HYDROCODONE BITARTRATE [Concomitant]
     Dosage: UNK
     Dates: start: 20110303
  7. ALLOPURINOL [Concomitant]
     Dosage: 600 MG,DAILY
     Route: 048
     Dates: start: 20091029
  8. ARANESP [Concomitant]
     Dosage: UNK, UNK
     Route: 065
     Dates: start: 20091217
  9. FUROSEMIDE [Concomitant]
     Dosage: 20 MG, DAILY
     Route: 048
     Dates: start: 20091029
  10. FLUOCINONIDE [Concomitant]
     Dosage: UNK
     Dates: start: 20110303
  11. ASPIRIN [Concomitant]
     Dosage: 81 MG,DAILY
     Route: 048
     Dates: start: 20091029
  12. CARBIDOPA + LEVODOPA [Concomitant]
     Dosage: UNK, UNK
     Route: 065
     Dates: start: 20091215
  13. GLUCOSAMINE/MSM [Concomitant]
     Dosage: 1500 UNK, DAILY
     Route: 048
     Dates: start: 20091029
  14. LASIX [Concomitant]
  15. REVLIMID [Concomitant]
     Dosage: 10 MG, DAILY
     Route: 048
     Dates: start: 20110321
  16. CLOTRIMAZOLE [Concomitant]
     Dosage: UNK
     Dates: start: 20110303
  17. EXJADE [Suspect]
     Indication: MYELODYSPLASTIC SYNDROME
     Dosage: 1000 MG, BID
     Route: 048
     Dates: start: 20091027, end: 20091103
  18. FOLIC ACID [Concomitant]
     Dosage: 1 MG, DAILY
     Route: 048
     Dates: start: 20091029
  19. CLOBETASOL PROPIONATE [Concomitant]
     Dosage: UNK
     Dates: start: 20110303
  20. EXJADE [Suspect]
     Dosage: 2000 MG, DAILY
     Route: 048
     Dates: start: 20091201
  21. METOPROLOL [Concomitant]
     Dosage: 12.50 MG, DAILY
     Route: 048
     Dates: start: 20091029

REACTIONS (8)
  - DECREASED APPETITE [None]
  - ABDOMINAL PAIN UPPER [None]
  - ASTHENIA [None]
  - DIARRHOEA [None]
  - OPEN WOUND [None]
  - SKIN DISCOLOURATION [None]
  - RECTAL HAEMORRHAGE [None]
  - SKIN HAEMORRHAGE [None]
